FAERS Safety Report 4959778-0 (Version None)
Quarter: 2006Q1

REPORT INFORMATION
  Report Type: 
  Country: None (occurrence: None)
  Receive Date: 20060331
  Receipt Date: 20060323
  Transmission Date: 20060701
  Serious: Yes (Other)
  Sender: FDA-Public Use
  Company Number: PH-BRISTOL-MYERS SQUIBB COMPANY-13330857

PATIENT
  Age: 48 Year
  Sex: Female

DRUGS (4)
  1. GLUCOPHAGE [Suspect]
     Indication: DIABETES MELLITUS NON-INSULIN-DEPENDENT
     Route: 048
     Dates: end: 20051213
  2. ASPIRIN [Concomitant]
     Indication: DYSLIPIDAEMIA
     Route: 048
     Dates: end: 20051213
  3. SIMVASTATIN [Concomitant]
     Indication: DYSLIPIDAEMIA
     Route: 048
     Dates: end: 20051213
  4. NEOBLOC [Concomitant]
     Indication: HYPERTENSION

REACTIONS (3)
  - BLOOD CREATININE INCREASED [None]
  - FACE OEDEMA [None]
  - URINARY TRACT INFECTION [None]
